FAERS Safety Report 7149351-0 (Version None)
Quarter: 2010Q4

REPORT INFORMATION
  Report Type: 
  Country: None (occurrence: None)
  Receive Date: 20101209
  Receipt Date: 20101129
  Transmission Date: 20110411
  Serious: Yes (Death, Hospitalization, Other)
  Sender: FDA-Public Use
  Company Number: US-BAXTER-2010BH026896

PATIENT
  Age: 72 Year
  Sex: Female

DRUGS (8)
  1. CYCLOPHOSPHAMIDE [Suspect]
     Indication: BREAST CANCER
     Route: 042
     Dates: start: 20101007, end: 20101007
  2. CYCLOPHOSPHAMIDE [Suspect]
     Route: 042
     Dates: start: 20100916, end: 20100916
  3. TAXOTERE [Suspect]
     Indication: BREAST CANCER
     Route: 051
     Dates: start: 20101007, end: 20101007
  4. TAXOTERE [Suspect]
     Route: 051
     Dates: start: 20100916, end: 20100916
  5. ANTIEMETICS AND ANTINAUSEANTS [Concomitant]
     Indication: PRODUCT USED FOR UNKNOWN INDICATION
     Route: 065
  6. SYMBICORT [Concomitant]
     Indication: PRODUCT USED FOR UNKNOWN INDICATION
     Route: 065
  7. EYE DROPS [Concomitant]
     Indication: PRODUCT USED FOR UNKNOWN INDICATION
     Route: 065
  8. PREVACID [Concomitant]
     Indication: PRODUCT USED FOR UNKNOWN INDICATION
     Route: 065

REACTIONS (3)
  - COLITIS [None]
  - RENAL FAILURE [None]
  - RESPIRATORY FAILURE [None]
